FAERS Safety Report 8046364-1 (Version None)
Quarter: 2012Q1

REPORT INFORMATION
  Report Type: 
  Country: None (occurrence: None)
  Receive Date: 20120113
  Receipt Date: 20120103
  Transmission Date: 20120608
  Serious: Yes (Other)
  Sender: FDA-Public Use
  Company Number: US-PFIZER INC-2012001442

PATIENT
  Sex: Female
  Weight: 98.866 kg

DRUGS (2)
  1. NEURONTIN [Suspect]
     Indication: DIABETIC NEUROPATHY
     Dosage: UNK, TWO TIMES A DAY
     Route: 048
     Dates: start: 20070101
  2. NEURONTIN [Suspect]
     Dosage: 50 MG, 2X/DAY
     Route: 048
     Dates: end: 20070101

REACTIONS (1)
  - HALLUCINATION [None]
